FAERS Safety Report 23498868 (Version 1)
Quarter: 2024Q1

REPORT INFORMATION
  Report Type: Spontaneous
  Country: RU (occurrence: RU)
  Receive Date: 20240208
  Receipt Date: 20240208
  Transmission Date: 20240409
  Serious: Yes (Life-Threatening, Hospitalization, Other)
  Sender: FDA-Public Use
  Company Number: RU-ABBVIE-5622959

PATIENT
  Age: 9 Year
  Sex: Male
  Weight: 39 kg

DRUGS (11)
  1. SEVOFLURANE [Suspect]
     Active Substance: SEVOFLURANE
     Indication: Induction of anaesthesia
     Dosage: 2.5 %
     Route: 055
     Dates: start: 20230916, end: 20230916
  2. SEVOFLURANE [Suspect]
     Active Substance: SEVOFLURANE
     Indication: Induction of anaesthesia
     Route: 055
  3. MIDAZOLAM [Concomitant]
     Active Substance: MIDAZOLAM
     Indication: Sedation
     Dosage: 0.5%-5 MG (1 AMPOULE)
     Route: 065
     Dates: start: 20230916, end: 20230916
  4. ROCURONIUM BROMIDE [Concomitant]
     Active Substance: ROCURONIUM BROMIDE
     Indication: Product used for unknown indication
     Route: 065
     Dates: start: 20230916, end: 20230916
  5. FENTANYL [Suspect]
     Active Substance: FENTANYL\FENTANYL CITRATE
     Indication: Induction of anaesthesia
     Dosage: 0.1 MG (0.005%-0.1 MG)
     Route: 065
     Dates: start: 20230916, end: 20230916
  6. CEFTRIAXONE [Suspect]
     Active Substance: CEFTRIAXONE\CEFTRIAXONE SODIUM
     Indication: Antibiotic prophylaxis
     Route: 065
     Dates: start: 20230916, end: 20230916
  7. TRACRIUM [Suspect]
     Active Substance: ATRACURIUM BESYLATE
     Indication: Endotracheal intubation
     Route: 065
     Dates: start: 20230916, end: 20230916
  8. CETIRIZINE [Concomitant]
     Active Substance: CETIRIZINE HYDROCHLORIDE
     Indication: Product used for unknown indication
     Route: 065
     Dates: start: 20230916, end: 20230919
  9. NOREPINEPHRINE [Concomitant]
     Active Substance: NOREPINEPHRINE
     Indication: Product used for unknown indication
     Route: 065
  10. DEXAMETHASONE SODIUM PHOSPHATE [Suspect]
     Active Substance: DEXAMETHASONE PHOSPHATE\DEXAMETHASONE SODIUM PHOSPHATE
     Indication: Product used for unknown indication
     Route: 065
     Dates: start: 20230916, end: 20230916
  11. PROPOFOL [Suspect]
     Active Substance: PROPOFOL
     Indication: Induction of anaesthesia
     Dosage: 1%-100 MG
     Route: 065
     Dates: start: 20230916, end: 20230916

REACTIONS (4)
  - Anaphylactic shock [Unknown]
  - Oropharyngeal pain [Unknown]
  - Hypotension [Unknown]
  - Hypopnoea [Unknown]

NARRATIVE: CASE EVENT DATE: 20230916
